FAERS Safety Report 4300464-8 (Version None)
Quarter: 2004Q1

REPORT INFORMATION
  Report Type: 
  Country: None (occurrence: None)
  Receive Date: 20040218
  Receipt Date: 20040204
  Transmission Date: 20041129
  Serious: Yes (Hospitalization, Other)
  Sender: FDA-Public Use
  Company Number: 2004-BP-00805BP

PATIENT
  Age: 75 Year
  Sex: Female

DRUGS (2)
  1. AGGRENOX [Suspect]
     Indication: CEREBROVASCULAR ACCIDENT PROPHYLAXIS
     Dosage: SEE TEXT (SEE TEXT, 25MG/200 MG (1 CAPSULE BID)), PO
     Route: 048
     Dates: start: 20030101
  2. AGGRENOX [Suspect]
     Indication: TRANSIENT ISCHAEMIC ATTACK
     Dosage: SEE TEXT (SEE TEXT, 25MG/200 MG (1 CAPSULE BID)), PO
     Route: 048
     Dates: start: 20030101

REACTIONS (4)
  - BLOOD POTASSIUM INCREASED [None]
  - LUNG OPERATION [None]
  - PROTEINURIA [None]
  - RENAL FAILURE [None]
